FAERS Safety Report 18212423 (Version 2)
Quarter: 2021Q4

REPORT INFORMATION
  Report Type: Report from Study
  Country: BR (occurrence: BR)
  Receive Date: 20200831
  Receipt Date: 20211118
  Transmission Date: 20220303
  Serious: Yes (Other)
  Sender: FDA-Public Use
  Company Number: BR-ABBVIE-20K-020-3542274-00

PATIENT
  Sex: Female
  Weight: 78 kg

DRUGS (4)
  1. HUMIRA [Suspect]
     Active Substance: ADALIMUMAB
     Indication: Axial spondyloarthritis
     Route: 058
     Dates: start: 20200114, end: 20200811
  2. DIPYRONE\PROMETHAZINE HYDROCHLORIDE [Concomitant]
     Active Substance: DIPYRONE\PROMETHAZINE HYDROCHLORIDE
     Indication: Spondylitis
     Dosage: 2 TABLETS PER DAY
     Route: 048
  3. DAFLON [Concomitant]
     Indication: Spondylitis
     Route: 048
     Dates: start: 202104
  4. CAFFEINE\DIPYRONE\ORPHENADRINE [Concomitant]
     Active Substance: CAFFEINE\DIPYRONE\ORPHENADRINE
     Indication: Spondylitis
     Dosage: 2 TABLETS PER DAY
     Route: 048
     Dates: start: 2020

REACTIONS (17)
  - Insomnia [Unknown]
  - Erythema multiforme [Recovered/Resolved]
  - Gait disturbance [Unknown]
  - Dermatitis allergic [Not Recovered/Not Resolved]
  - Skin irritation [Unknown]
  - Weight decreased [Recovering/Resolving]
  - Skin laceration [Recovering/Resolving]
  - Post procedural complication [Unknown]
  - Wound [Recovering/Resolving]
  - Skin exfoliation [Unknown]
  - Pain of skin [Not Recovered/Not Resolved]
  - Skin bacterial infection [Recovered/Resolved]
  - Postoperative wound infection [Unknown]
  - Pain [Not Recovered/Not Resolved]
  - Peripheral swelling [Unknown]
  - Erythema [Unknown]
  - Intentional product misuse [Unknown]

NARRATIVE: CASE EVENT DATE: 20200101
